FAERS Safety Report 4579389-9 (Version None)
Quarter: 2005Q1

REPORT INFORMATION
  Report Type: 
  Country: None (occurrence: None)
  Receive Date: 20050209
  Receipt Date: 20050125
  Transmission Date: 20050727
  Serious: Yes (Hospitalization, Other)
  Sender: FDA-Public Use
  Company Number: USA030844408

PATIENT
  Age: 63 Year
  Sex: Female
  Weight: 82 kg

DRUGS (7)
  1. HUMALOG [Suspect]
     Indication: DIABETES MELLITUS
     Dosage: 18 U DAY
     Dates: start: 20010101
  2. HUMULIN N [Suspect]
     Indication: DIABETES MELLITUS
     Dosage: 28 U DAY
     Dates: start: 20010101
  3. HUMULIN R [Suspect]
     Indication: DIABETES MELLITUS
     Dates: end: 20010101
  4. INSULIN [Suspect]
     Indication: DIABETES MELLITUS
  5. NEURONTIN [Concomitant]
  6. LEVOXYL [Concomitant]
  7. GLUCERNA [Concomitant]

REACTIONS (18)
  - ABASIA [None]
  - ARTHRITIS [None]
  - BLOOD GLUCOSE DECREASED [None]
  - BLOOD POTASSIUM INCREASED [None]
  - CARDIAC DISORDER [None]
  - CARPAL TUNNEL SYNDROME [None]
  - HEADACHE [None]
  - INJECTION SITE PAIN [None]
  - NECK PAIN [None]
  - NEUROPATHY [None]
  - PARAESTHESIA [None]
  - RETINAL DETACHMENT [None]
  - RETINAL HAEMORRHAGE [None]
  - SPINAL COLUMN STENOSIS [None]
  - TONGUE DISORDER [None]
  - TREMOR [None]
  - VISUAL ACUITY REDUCED [None]
  - WEIGHT INCREASED [None]
